FAERS Safety Report 15795508 (Version 1)
Quarter: 2019Q1

REPORT INFORMATION
  Report Type: Report from Study
  Country: CO (occurrence: CO)
  Receive Date: 20190107
  Receipt Date: 20190107
  Transmission Date: 20190417
  Serious: Yes (Hospitalization)
  Sender: FDA-Public Use
  Company Number: PHHY2018CO199607

PATIENT
  Sex: Female
  Weight: 85.99 kg

DRUGS (1)
  1. AFINITOR [Suspect]
     Active Substance: EVEROLIMUS
     Indication: BREAST CANCER
     Dosage: 10 MG, QD
     Route: 065

REACTIONS (4)
  - Chills [Unknown]
  - Blood glucose abnormal [Unknown]
  - Pyrexia [Unknown]
  - Lung infection [Unknown]
